FAERS Safety Report 10023073 (Version 1)
Quarter: 2014Q1

REPORT INFORMATION
  Report Type: Spontaneous
  Country: NZ (occurrence: NZ)
  Receive Date: 20140319
  Receipt Date: 20140319
  Transmission Date: 20141002
  Serious: Yes (Other)
  Sender: FDA-Public Use
  Company Number: NZ-MYLANLABS-2014S1005209

PATIENT
  Age: 91 Year
  Sex: Male

DRUGS (1)
  1. GABAPENTIN [Suspect]
     Indication: NEURALGIA
     Route: 048
     Dates: start: 201403

REACTIONS (2)
  - Ataxia [Recovered/Resolved]
  - Fall [Recovered/Resolved]
